FAERS Safety Report 5290610-4 (Version None)
Quarter: 2007Q2

REPORT INFORMATION
  Report Type: 
  Country: None (occurrence: None)
  Receive Date: 20070405
  Receipt Date: 20070405
  Transmission Date: 20071010
  Serious: Yes (Other)
  Sender: FDA-Public Use
  Company Number: None

PATIENT
  Age: 32 Year
  Sex: Female
  Weight: 61.4 kg

DRUGS (1)
  1. LITHIUM CARBONATE [Suspect]
     Indication: DEPRESSION
     Dosage: 300MG Q12H - 900 MG TID (PO)
     Route: 048
     Dates: start: 20070104, end: 20070305

REACTIONS (6)
  - BLOOD GLUCOSE INCREASED [None]
  - POLYURIA [None]
  - TREMOR [None]
  - URINE ELECTROLYTES DECREASED [None]
  - VOMITING [None]
  - WEIGHT INCREASED [None]
